FAERS Safety Report 9858492 (Version 1)
Quarter: 2014Q1

REPORT INFORMATION
  Report Type: Spontaneous
  Country: US (occurrence: None)
  Receive Date: 20140130
  Receipt Date: 20140130
  Transmission Date: 20141002
  Serious: Yes (Hospitalization)
  Sender: FDA-Public Use
  Company Number: None

PATIENT
  Age: 82 Year
  Sex: Female
  Weight: 0 kg

DRUGS (1)
  1. FORTEO [Suspect]
     Route: 058
     Dates: start: 20110706, end: 20140128

REACTIONS (2)
  - Chronic obstructive pulmonary disease [None]
  - Cardiac failure congestive [None]
